FAERS Safety Report 5672286-7 (Version None)
Quarter: 2008Q1

REPORT INFORMATION
  Report Type: 
  Country: None (occurrence: None)
  Receive Date: 20080319
  Receipt Date: 20080310
  Transmission Date: 20080703
  Serious: Yes (Hospitalization, Other)
  Sender: FDA-Public Use
  Company Number: PHHY2008JP01100

PATIENT
  Age: 56 Year
  Sex: Female
  Weight: 54 kg

DRUGS (8)
  1. FARMORUBICIN [Suspect]
     Route: 042
     Dates: start: 20050607, end: 20051025
  2. FLUOROURACIL [Suspect]
     Route: 042
     Dates: start: 20050607, end: 20051025
  3. ENDOXAN [Suspect]
     Route: 048
     Dates: start: 20050607, end: 20051025
  4. TS 1 [Suspect]
     Dosage: 100MG/DAY
     Route: 048
     Dates: start: 20070309, end: 20070331
  5. UFT [Suspect]
     Dosage: 400MG/DAY
     Route: 048
     Dates: start: 20070416, end: 20070915
  6. ZOMETA [Suspect]
     Indication: METASTASES TO BONE
     Dosage: 4MG, QMO
     Route: 042
     Dates: start: 20070309
  7. ZOMETA [Suspect]
     Dosage: 4MG
     Route: 042
     Dates: start: 20071225
  8. ZOMETA [Suspect]
     Dosage: 4MG
     Dates: start: 20080115

REACTIONS (12)
  - ALANINE AMINOTRANSFERASE INCREASED [None]
  - ASPARTATE AMINOTRANSFERASE INCREASED [None]
  - BLOOD ALKALINE PHOSPHATASE INCREASED [None]
  - BLOOD LACTATE DEHYDROGENASE INCREASED [None]
  - BLOOD POTASSIUM DECREASED [None]
  - BONE MARROW FAILURE [None]
  - CARBOHYDRATE ANTIGEN 15-3 INCREASED [None]
  - HAEMATOCRIT DECREASED [None]
  - HAEMOGLOBIN DECREASED [None]
  - PYREXIA [None]
  - RED BLOOD CELL COUNT DECREASED [None]
  - WHITE BLOOD CELL COUNT DECREASED [None]
